FAERS Safety Report 16138516 (Version 1)
Quarter: 2019Q2

REPORT INFORMATION
  Report Type: Spontaneous
  Country: BE (occurrence: BE)
  Receive Date: 20190401
  Receipt Date: 20190401
  Transmission Date: 20190711
  Serious: Yes (Other)
  Sender: FDA-Public Use
  Company Number: BE-SA-2019SA067456

PATIENT
  Age: 67 Year
  Sex: Female

DRUGS (2)
  1. CLEXANE [Suspect]
     Active Substance: ENOXAPARIN SODIUM
     Indication: AEROPHOBIA
     Dosage: 40 MG, UNK
     Dates: start: 20190201, end: 20190201
  2. CLEXANE [Suspect]
     Active Substance: ENOXAPARIN SODIUM
     Dosage: 40 MG, UNK
     Dates: start: 20190222, end: 20190222

REACTIONS (6)
  - Oropharyngeal pain [Recovering/Resolving]
  - Swelling [Recovering/Resolving]
  - Candida infection [Recovering/Resolving]
  - Angioedema [Recovering/Resolving]
  - Dysphagia [Recovering/Resolving]
  - Off label use [Unknown]

NARRATIVE: CASE EVENT DATE: 20190225
